FAERS Safety Report 9786431 (Version 3)
Quarter: 2014Q1

REPORT INFORMATION
  Report Type: Spontaneous
  Country: BR (occurrence: BR)
  Receive Date: 20131227
  Receipt Date: 20140124
  Transmission Date: 20141002
  Serious: Yes (Death, Hospitalization)
  Sender: FDA-Public Use
  Company Number: BR-NOVOPROD-385098

PATIENT
  Age: 69 Year
  Sex: Female
  Weight: 81 kg

DRUGS (7)
  1. NOVOLIN N [Suspect]
     Indication: TYPE 2 DIABETES MELLITUS
     Dosage: UNK
     Route: 058
     Dates: start: 2003
  2. NOVOLIN N [Suspect]
     Dosage: 70 IU, QD
     Route: 058
     Dates: start: 20130726
  3. AAS [Concomitant]
     Indication: CARDIAC DISORDER
     Dosage: 2 TAB, QD
     Route: 048
  4. OMEPRAZOL                          /00661201/ [Concomitant]
     Indication: GASTROINTESTINAL DISORDER
     Dosage: 1 TAB, QD
     Route: 048
  5. ARA 2 [Concomitant]
     Indication: HYPERTENSION
     Dosage: 2 TAB, QD
     Route: 048
  6. BENORMAL [Concomitant]
     Indication: HYPOVITAMINOSIS
     Dosage: 1 TAB, QD
     Route: 048
  7. ATENOLOL [Concomitant]
     Indication: HYPERTENSION
     Dosage: 1 TAB, QD
     Route: 048

REACTIONS (5)
  - Lung disorder [Fatal]
  - Pyrexia [Unknown]
  - Malaise [Unknown]
  - Incorrect product storage [Unknown]
  - Blood glucose increased [Unknown]
